FAERS Safety Report 16380363 (Version 5)
Quarter: 2019Q3

REPORT INFORMATION
  Report Type: Other
  Country: CA (occurrence: CA)
  Receive Date: 20190601
  Receipt Date: 20190814
  Transmission Date: 20191004
  Serious: Yes (Life-Threatening, Hospitalization, Other)
  Sender: FDA-Public Use
  Company Number: CA-APOTEX-2019AP014842

PATIENT
  Age: 65 Year
  Sex: Female

DRUGS (20)
  1. AMLODIPINE [Concomitant]
     Active Substance: AMLODIPINE BESYLATE
     Indication: PRODUCT USED FOR UNKNOWN INDICATION
     Dosage: 10 MG, QD
     Route: 048
  2. CANDESARTAN. [Concomitant]
     Active Substance: CANDESARTAN
     Indication: PRODUCT USED FOR UNKNOWN INDICATION
     Dosage: 8 MG, QD
     Route: 048
  3. PREDNISONE. [Suspect]
     Active Substance: PREDNISONE
     Indication: ASTHMA
     Dosage: UNK
     Route: 065
  4. IPRATROPIUM [Suspect]
     Active Substance: IPRATROPIUM
     Indication: PRODUCT USED FOR UNKNOWN INDICATION
     Dosage: 4 DF, UNK
     Route: 065
  5. ATROVENT [Suspect]
     Active Substance: IPRATROPIUM BROMIDE
     Indication: PRODUCT USED FOR UNKNOWN INDICATION
     Dosage: 4 DF, UNK, INHALATION ROUTE
     Route: 050
  6. VITAMIN D                          /00107901/ [Concomitant]
     Active Substance: ERGOCALCIFEROL
     Indication: PRODUCT USED FOR UNKNOWN INDICATION
     Dosage: UNK, QD
     Route: 065
  7. CYCLOPHOSPHAMIDE. [Concomitant]
     Active Substance: CYCLOPHOSPHAMIDE
     Indication: PRODUCT USED FOR UNKNOWN INDICATION
     Dosage: 2 DF, QD
     Route: 065
  8. METFORMIN [Concomitant]
     Active Substance: METFORMIN HYDROCHLORIDE
     Indication: PRODUCT USED FOR UNKNOWN INDICATION
     Dosage: 500 MG, BID
     Route: 048
  9. ROSUVASTATIN CALCIUM. [Concomitant]
     Active Substance: ROSUVASTATIN CALCIUM
     Indication: PRODUCT USED FOR UNKNOWN INDICATION
     Dosage: 20 MG, UNK
     Route: 048
  10. CLOPIDOGREL BISULFATE. [Concomitant]
     Active Substance: CLOPIDOGREL BISULFATE
     Indication: PRODUCT USED FOR UNKNOWN INDICATION
     Dosage: 75 MG, QD
     Route: 048
  11. NUCALA [Suspect]
     Active Substance: MEPOLIZUMAB
     Indication: PRODUCT USED FOR UNKNOWN INDICATION
     Route: 042
  12. SYMBICORT [Suspect]
     Active Substance: BUDESONIDE\FORMOTEROL FUMARATE DIHYDRATE
     Indication: PRODUCT USED FOR UNKNOWN INDICATION
     Dosage: 2 DF, TID, INHALATION ROUTE
     Route: 050
  13. INDAPAMIDE. [Concomitant]
     Active Substance: INDAPAMIDE
     Indication: PRODUCT USED FOR UNKNOWN INDICATION
     Route: 065
  14. MIRABEGRON [Concomitant]
     Active Substance: MIRABEGRON
     Indication: PRODUCT USED FOR UNKNOWN INDICATION
     Dosage: 50 MG, QD
     Route: 048
  15. VENTOLIN [Suspect]
     Active Substance: ALBUTEROL SULFATE
     Indication: PRODUCT USED FOR UNKNOWN INDICATION
     Route: 065
  16. ASPIRIN                            /00002701/ [Concomitant]
     Active Substance: ASPIRIN
     Indication: PRODUCT USED FOR UNKNOWN INDICATION
     Dosage: 81 MG, QD
     Route: 048
  17. PANTOPRAZOLE [Concomitant]
     Active Substance: PANTOPRAZOLE
     Indication: PRODUCT USED FOR UNKNOWN INDICATION
     Dosage: 50 MG, BID
     Route: 048
  18. SALBUTAMOL [Suspect]
     Active Substance: ALBUTEROL
     Indication: PRODUCT USED FOR UNKNOWN INDICATION
     Dosage: 2 DF, QD
     Route: 065
  19. PREDNISONE. [Suspect]
     Active Substance: PREDNISONE
     Indication: DYSPNOEA
     Dosage: UNK
     Route: 065
  20. OMEPRAZOLE. [Concomitant]
     Active Substance: OMEPRAZOLE
     Indication: PRODUCT USED FOR UNKNOWN INDICATION
     Dosage: 20 MG, QD
     Route: 048

REACTIONS (36)
  - Wheezing [Recovered/Resolved]
  - Goitre [Recovered/Resolved]
  - Pharyngeal erythema [Recovered/Resolved]
  - Pyrexia [Recovered/Resolved]
  - Chest pain [Recovered/Resolved]
  - Cough [Recovered/Resolved]
  - Influenza [Recovered/Resolved]
  - Obstructive airways disorder [Recovered/Resolved]
  - Oesophageal disorder [Recovered/Resolved]
  - Pneumonia [Recovered/Resolved]
  - Renal impairment [Recovered/Resolved]
  - Dyspnoea [Recovered/Resolved]
  - Anxiety [Recovered/Resolved]
  - Atelectasis [Recovered/Resolved]
  - Lung disorder [Recovered/Resolved]
  - Chronic sinusitis [Recovered/Resolved]
  - Hypoventilation [Recovered/Resolved]
  - Respiratory distress [Recovered/Resolved]
  - Upper airway obstruction [Recovered/Resolved]
  - Cardiac disorder [Recovered/Resolved]
  - Forced vital capacity decreased [Recovered/Resolved]
  - Myalgia [Recovered/Resolved]
  - Paranasal sinus discomfort [Recovered/Resolved]
  - Upper respiratory tract inflammation [Recovered/Resolved]
  - Acute coronary syndrome [Recovered/Resolved]
  - Aspiration [Recovered/Resolved]
  - Dysphagia [Recovered/Resolved]
  - Oral disorder [Recovered/Resolved]
  - Productive cough [Recovered/Resolved]
  - Drug ineffective [Recovered/Resolved]
  - Asthma [Recovered/Resolved]
  - Blood count abnormal [Recovered/Resolved]
  - Bronchial wall thickening [Recovered/Resolved]
  - Hyperglycaemia [Recovered/Resolved]
  - Oropharyngeal pain [Recovered/Resolved]
  - Sinus congestion [Recovered/Resolved]
